FAERS Safety Report 4968286-2 (Version None)
Quarter: 2006Q2

REPORT INFORMATION
  Report Type: 
  Country: None (occurrence: None)
  Receive Date: 20060405
  Receipt Date: 20060321
  Transmission Date: 20061013
  Serious: Yes (Other)
  Sender: FDA-Public Use
  Company Number: 2006037023

PATIENT
  Age: 83 Year
  Sex: Female

DRUGS (16)
  1. CLINDAMYCIN PHOSPHATE [Suspect]
     Indication: ILL-DEFINED DISORDER
     Dosage: 1 APPLICATION (1 IN 1 D), VAGINAL
     Route: 067
     Dates: start: 20060310
  2. WARFARIN [Concomitant]
  3. ALTACE [Concomitant]
  4. METOPROLOL TARTRATE [Concomitant]
  5. LANOXIN [Concomitant]
  6. LIPITOR (ATORVASTATIN) [Concomitant]
  7. LOSEC (OMEPRAZOLE) [Concomitant]
  8. ALDACTONE [Concomitant]
  9. MULTIVITAMIN [Concomitant]
  10. GLICLAZIDE [Concomitant]
  11. METFORMIN [Concomitant]
  12. PREMARIN [Concomitant]
  13. REMINYL (GALANTAMINE) [Concomitant]
  14. SYNTHROID [Concomitant]
  15. QUETIAPINE FUMARATE [Concomitant]
  16. ASPIRIN [Concomitant]

REACTIONS (1)
  - INTERNATIONAL NORMALISED RATIO INCREASED [None]
